FAERS Safety Report 9731668 (Version 5)
Quarter: 2014Q1

REPORT INFORMATION
  Report Type: Spontaneous
  Country: US (occurrence: US)
  Receive Date: 20131204
  Receipt Date: 20140314
  Transmission Date: 20141002
  Serious: No
  Sender: FDA-Public Use
  Company Number: US-BIOGENIDEC-2013BI112128

PATIENT
  Age: 71 Year
  Sex: Female

DRUGS (2)
  1. TYSABRI [Suspect]
     Indication: RELAPSING-REMITTING MULTIPLE SCLEROSIS
     Route: 042
  2. TYSABRI [Suspect]
     Indication: RELAPSING-REMITTING MULTIPLE SCLEROSIS
     Route: 042
     Dates: start: 20131014, end: 20131212

REACTIONS (31)
  - Balance disorder [Not Recovered/Not Resolved]
  - Cardiac disorder [Not Recovered/Not Resolved]
  - Feeling abnormal [Not Recovered/Not Resolved]
  - Fall [Recovered/Resolved]
  - Musculoskeletal pain [Not Recovered/Not Resolved]
  - Gait disturbance [Not Recovered/Not Resolved]
  - Pain [Unknown]
  - Heart rate increased [Not Recovered/Not Resolved]
  - Anxiety [Recovered/Resolved]
  - Mental impairment [Not Recovered/Not Resolved]
  - Spinal disorder [Not Recovered/Not Resolved]
  - Myopia [Not Recovered/Not Resolved]
  - Movement disorder [Not Recovered/Not Resolved]
  - Back pain [Not Recovered/Not Resolved]
  - Abasia [Not Recovered/Not Resolved]
  - Paralysis [Not Recovered/Not Resolved]
  - Palpitations [Not Recovered/Not Resolved]
  - Fear [Not Recovered/Not Resolved]
  - Faeces discoloured [Not Recovered/Not Resolved]
  - Incontinence [Not Recovered/Not Resolved]
  - Hypoaesthesia [Not Recovered/Not Resolved]
  - Memory impairment [Unknown]
  - Dysstasia [Recovered/Resolved]
  - Contusion [Unknown]
  - Vein disorder [Unknown]
  - Malaise [Not Recovered/Not Resolved]
  - Dizziness [Not Recovered/Not Resolved]
  - Multiple sclerosis [Not Recovered/Not Resolved]
  - Oropharyngeal pain [Not Recovered/Not Resolved]
  - Drug ineffective [Not Recovered/Not Resolved]
  - Infusion site bruising [Recovered/Resolved]
